FAERS Safety Report 6437972-X (Version None)
Quarter: 2009Q4

REPORT INFORMATION
  Report Type: 
  Country: None (occurrence: None)
  Receive Date: 20091112
  Receipt Date: 20081117
  Transmission Date: 20100525
  Serious: No
  Sender: FDA-Public Use
  Company Number: US-ASTRAZENECA-2009UW16877

PATIENT
  Age: 83 Year
  Sex: Male

DRUGS (3)
  1. PRILOSEC OTC [Suspect]
     Indication: NAUSEA
     Dosage: 1 TABLET, 1 /DAY
     Route: 048
     Dates: start: 20080617, end: 20081116
  2. EYE VITAMINS [Concomitant]
     Dosage: UNKNOWN
  3. ASPIRIN [Concomitant]
     Dosage: UNKNOWN

REACTIONS (2)
  - INCORRECT DRUG ADMINISTRATION DURATION [None]
  - RASH [None]
